FAERS Safety Report 14972558 (Version 2)
Quarter: 2018Q2

REPORT INFORMATION
  Report Type: Report from Study
  Country: CA (occurrence: CA)
  Receive Date: 20180605
  Receipt Date: 20180612
  Transmission Date: 20180711
  Serious: Yes (Other)
  Sender: FDA-Public Use
  Company Number: CA-ROCHE-2134644

PATIENT
  Sex: Male

DRUGS (12)
  1. PLAQUENIL [Concomitant]
     Active Substance: HYDROXYCHLOROQUINE SULFATE
  2. ESBRIET [Concomitant]
     Active Substance: PIRFENIDONE
     Route: 065
     Dates: start: 20180531
  3. METFORMIN [Concomitant]
     Active Substance: METFORMIN HYDROCHLORIDE
  4. VENTOLIN [Concomitant]
     Active Substance: ALBUTEROL SULFATE
  5. LIPITOR [Concomitant]
     Active Substance: ATORVASTATIN CALCIUM
  6. CELLCEPT [Suspect]
     Active Substance: MYCOPHENOLATE MOFETIL\MYCOPHENOLATE MOFETIL HYDROCHLORIDE
     Indication: PRODUCT USED FOR UNKNOWN INDICATION
     Dosage: ONGOING
     Route: 065
  7. PARIET [Concomitant]
     Active Substance: RABEPRAZOLE SODIUM
  8. MOMETASONE [Concomitant]
     Active Substance: MOMETASONE
  9. PREDNISONE. [Concomitant]
     Active Substance: PREDNISONE
  10. FOSAMAX [Concomitant]
     Active Substance: ALENDRONATE SODIUM
  11. ARICEPT [Concomitant]
     Active Substance: DONEPEZIL HYDROCHLORIDE
  12. ASA [Concomitant]
     Active Substance: ASPIRIN

REACTIONS (1)
  - Polyp [Unknown]
